FAERS Safety Report 25976400 (Version 1)
Quarter: 2025Q4

REPORT INFORMATION
  Report Type: Spontaneous
  Country: GB (occurrence: GB)
  Receive Date: 20251029
  Receipt Date: 20251029
  Transmission Date: 20260118
  Serious: Yes (Disabling, Other)
  Sender: BAYER HEALTHCARE PHARMACEUTICALS INC.
  Company Number: None

PATIENT
  Age: 57 Year
  Sex: Female
  Weight: 105 kg

DRUGS (12)
  1. CIPROFLOXACIN HYDROCHLORIDE [Suspect]
     Active Substance: CIPROFLOXACIN HYDROCHLORIDE
     Indication: Pseudomonas infection
     Dosage: 500MG TWICE DAILY
     Dates: start: 20250528, end: 20250610
  2. CIPROFLOXACIN HYDROCHLORIDE [Suspect]
     Active Substance: CIPROFLOXACIN HYDROCHLORIDE
     Indication: Adverse drug reaction
     Dosage: 250MG TWICE DAILY
     Dates: start: 20250625, end: 20250709
  3. CIPROFLOXACIN HYDROCHLORIDE [Suspect]
     Active Substance: CIPROFLOXACIN HYDROCHLORIDE
     Indication: Wound
     Dosage: 250MG TWICE A DAY
     Dates: start: 20250714, end: 20250728
  4. CIPROFLOXACIN HYDROCHLORIDE [Suspect]
     Active Substance: CIPROFLOXACIN HYDROCHLORIDE
     Indication: Wound
     Dosage: 250MG TWICE DAILY
     Dates: start: 20250729, end: 20250805
  5. CIPROFLOXACIN HYDROCHLORIDE [Suspect]
     Active Substance: CIPROFLOXACIN HYDROCHLORIDE
     Indication: Wound secretion
     Dosage: 250MG TWICE DAILY
     Dates: start: 20250813, end: 20250820
  6. ARIPIPRAZOLE [Concomitant]
     Active Substance: ARIPIPRAZOLE
     Indication: Depression
  7. CANDESARTAN [Concomitant]
     Active Substance: CANDESARTAN
     Indication: Migraine
  8. DULOXETINE [Concomitant]
     Active Substance: DULOXETINE
  9. LANSOPRAZOLE [Concomitant]
     Active Substance: LANSOPRAZOLE
     Indication: Gastrooesophageal reflux disease
  10. THYROXINE [Concomitant]
     Active Substance: LEVOTHYROXINE
     Indication: Post procedural hypothyroidism
  11. MIRTAZAPINE [Concomitant]
     Active Substance: MIRTAZAPINE
     Indication: Depression
  12. PREGABALIN [Concomitant]
     Active Substance: PREGABALIN
     Indication: Neuralgia

REACTIONS (5)
  - Arthralgia [Recovered/Resolved with Sequelae]
  - Muscle fatigue [Not Recovered/Not Resolved]
  - Tendon rupture [Not Recovered/Not Resolved]
  - Mental fatigue [Not Recovered/Not Resolved]
  - Fatigue [Not Recovered/Not Resolved]

NARRATIVE: CASE EVENT DATE: 20250716
